APPROVED DRUG PRODUCT: INFUVITE ADULT
Active Ingredient: ALPHA-TOCOPHEROL ACETATE; ASCORBIC ACID; BIOTIN; CHOLECALCIFEROL; CYANOCOBALAMIN; DEXPANTHENOL; FOLIC ACID; NIACINAMIDE; PYRIDOXINE HYDROCHLORIDE; RIBOFLAVIN 5'-PHOSPHATE SODIUM; THIAMINE HYDROCHLORIDE; VITAMIN A PALMITATE; VITAMIN K
Strength: 2 IU/ML;40MG/ML;12MCG/ML;40 IU/ML;1MCG/ML;3MG/ML;120MCG/ML;8MG/ML;1.2MG/ML;0.72MG/ML;1.2MG/ML;660 IU/ML;30MCG/ML
Dosage Form/Route: SOLUTION;INTRAVENOUS
Application: N021163 | Product #002
Applicant: SANDOZ CANADA INC
Approved: Jun 16, 2003 | RLD: Yes | RS: Yes | Type: RX